FAERS Safety Report 18375013 (Version 5)
Quarter: 2021Q4

REPORT INFORMATION
  Report Type: Report from Study
  Country: US (occurrence: US)
  Receive Date: 20201013
  Receipt Date: 20211103
  Transmission Date: 20220303
  Serious: Yes (Death, Other)
  Sender: FDA-Public Use
  Company Number: US-SHIRE-US202027694

PATIENT
  Age: 69 Year
  Sex: Male
  Weight: 59 kg

DRUGS (29)
  1. TEDUGLUTIDE [Suspect]
     Active Substance: TEDUGLUTIDE
     Indication: Short-bowel syndrome
     Dosage: 0.328 UNK, QD
     Route: 058
     Dates: start: 20200417
  2. TEDUGLUTIDE [Suspect]
     Active Substance: TEDUGLUTIDE
     Indication: Short-bowel syndrome
     Dosage: 0.328 UNK, QD
     Route: 058
     Dates: start: 20200417
  3. TEDUGLUTIDE [Suspect]
     Active Substance: TEDUGLUTIDE
     Indication: Short-bowel syndrome
     Dosage: 0.328 UNK, QD
     Route: 058
     Dates: start: 20200417
  4. TEDUGLUTIDE [Suspect]
     Active Substance: TEDUGLUTIDE
     Indication: Short-bowel syndrome
     Dosage: 0.328 UNK, QD
     Route: 058
     Dates: start: 20200417
  5. TEDUGLUTIDE [Suspect]
     Active Substance: TEDUGLUTIDE
     Dosage: 0.328 UNK, QD
     Route: 050
     Dates: start: 20200417
  6. TEDUGLUTIDE [Suspect]
     Active Substance: TEDUGLUTIDE
     Dosage: 0.328 UNK, QD
     Route: 050
     Dates: start: 20200417
  7. TEDUGLUTIDE [Suspect]
     Active Substance: TEDUGLUTIDE
     Dosage: 0.328 UNK, QD
     Route: 050
     Dates: start: 20200417
  8. TEDUGLUTIDE [Suspect]
     Active Substance: TEDUGLUTIDE
     Dosage: 0.328 UNK, QD
     Route: 050
     Dates: start: 20200417
  9. TEDUGLUTIDE [Suspect]
     Active Substance: TEDUGLUTIDE
     Dosage: 0.328 MILLILITER
     Route: 065
  10. TEDUGLUTIDE [Suspect]
     Active Substance: TEDUGLUTIDE
     Dosage: 0.328 MILLILITER
     Route: 065
  11. TEDUGLUTIDE [Suspect]
     Active Substance: TEDUGLUTIDE
     Dosage: 0.328 MILLILITER
     Route: 065
  12. TEDUGLUTIDE [Suspect]
     Active Substance: TEDUGLUTIDE
     Dosage: 0.328 MILLILITER
     Route: 065
  13. PLAVIX [Concomitant]
     Active Substance: CLOPIDOGREL BISULFATE
  14. VITAMIN D3 [Concomitant]
     Active Substance: CHOLECALCIFEROL
  15. OPIUM TINCTURE [Concomitant]
     Active Substance: MORPHINE
  16. VITAMIN B12 [Concomitant]
     Active Substance: CYANOCOBALAMIN
  17. METFORMIN [Concomitant]
     Active Substance: METFORMIN HYDROCHLORIDE
  18. ADALIMUMAB [Concomitant]
     Active Substance: ADALIMUMAB
  19. METRONIDAZOLE [Concomitant]
     Active Substance: METRONIDAZOLE
  20. ALLEGRA ALLERGY [Concomitant]
     Active Substance: FEXOFENADINE HYDROCHLORIDE
  21. PREDNISONE [Concomitant]
     Active Substance: PREDNISONE
  22. PANTOPRAZOLE SODIUM [Concomitant]
     Active Substance: PANTOPRAZOLE SODIUM
  23. AZATHIOPRINE [Concomitant]
     Active Substance: AZATHIOPRINE
  24. GABAPENTIN [Concomitant]
     Active Substance: GABAPENTIN
  25. BUPROPION HYDROCHLORIDE [Concomitant]
     Active Substance: BUPROPION HYDROCHLORIDE
  26. MUCINEX [Concomitant]
     Active Substance: GUAIFENESIN
  27. SINGULAIR [Concomitant]
     Active Substance: MONTELUKAST SODIUM
  28. VIBERZI [Concomitant]
     Active Substance: ELUXADOLINE
  29. AMITRIPTYLINE [Concomitant]
     Active Substance: AMITRIPTYLINE

REACTIONS (8)
  - Death [Fatal]
  - Limb mass [Recovered/Resolved]
  - Gastrointestinal disorder [Unknown]
  - Unevaluable event [Unknown]
  - Procedural site reaction [Unknown]
  - Weight decreased [Unknown]
  - Product reconstitution quality issue [Unknown]
  - Product dose omission issue [Recovered/Resolved]

NARRATIVE: CASE EVENT DATE: 20201008
